FAERS Safety Report 11604015 (Version 3)
Quarter: 2015Q4

REPORT INFORMATION
  Report Type: Spontaneous
  Country: US (occurrence: US)
  Receive Date: 20151007
  Receipt Date: 20151218
  Transmission Date: 20160304
  Serious: Yes (Life-Threatening, Hospitalization)
  Sender: FDA-Public Use
  Company Number: US-BAYER-2015-436766

PATIENT
  Age: 27 Year
  Sex: Female
  Weight: 81.63 kg

DRUGS (2)
  1. MIRENA [Suspect]
     Active Substance: LEVONORGESTREL
     Indication: CONTRACEPTION
     Dosage: 20 MCG/24HR, CONT
     Route: 015
     Dates: start: 20130418, end: 20131127
  2. MIDOL [CAFFEINE,MEPYRAMINE MALEATE,PARACETAMOL] [Concomitant]
     Indication: PAIN

REACTIONS (6)
  - Uterine perforation [None]
  - Injury [None]
  - Infection [None]
  - Abdominal pain lower [None]
  - General physical health deterioration [None]
  - Device dislocation [None]

NARRATIVE: CASE EVENT DATE: 201310
